FAERS Safety Report 9313711 (Version 2)
Quarter: 2013Q2

REPORT INFORMATION
  Report Type: Spontaneous
  Country: US (occurrence: US)
  Receive Date: 20130529
  Receipt Date: 20130531
  Transmission Date: 20140414
  Serious: Yes (Death)
  Sender: FDA-Public Use
  Company Number: US-ROCHE-1228952

PATIENT
  Sex: Female
  Weight: 82 kg

DRUGS (14)
  1. XOLAIR [Suspect]
     Indication: ASTHMA
     Dosage: 150MG/1.2 ML VIAL
     Route: 058
     Dates: start: 20050105, end: 20130227
  2. XOLAIR [Suspect]
     Indication: RHINITIS ALLERGIC
  3. PROAIR (UNITED STATES) [Concomitant]
     Indication: ASTHMA
     Route: 065
  4. DULERA [Concomitant]
     Indication: ASTHMA
     Route: 065
     Dates: start: 20130319, end: 20130319
  5. SINGULAIR [Concomitant]
     Indication: ASTHMA
     Route: 065
     Dates: start: 200409
  6. THEOPHYLLINE [Concomitant]
     Indication: ASTHMA
     Route: 065
  7. ADVAIR [Concomitant]
     Dosage: 250/50
     Route: 065
     Dates: start: 200409, end: 200802
  8. UNIPHYL [Concomitant]
     Route: 065
     Dates: start: 200409
  9. ALBUTEROL [Concomitant]
     Route: 065
     Dates: start: 200409
  10. FLONASE NASAL SPRAY [Concomitant]
     Route: 065
     Dates: start: 200412, end: 201302
  11. TOURO [Concomitant]
     Route: 065
     Dates: start: 200512, end: 200603
  12. ALLEGRA-D [Concomitant]
     Route: 065
     Dates: start: 200603, end: 200912
  13. MUCINEX [Concomitant]
     Route: 065
     Dates: start: 200912, end: 201302
  14. SYMBICORT [Concomitant]
     Route: 065
     Dates: start: 200802, end: 20130319

REACTIONS (3)
  - Death [Fatal]
  - Asthma [Unknown]
  - Upper respiratory tract infection [Unknown]
